FAERS Safety Report 17032866 (Version 4)
Quarter: 2020Q1

REPORT INFORMATION
  Report Type: Spontaneous
  Country: US (occurrence: US)
  Receive Date: 20191114
  Receipt Date: 20200319
  Transmission Date: 20200409
  Serious: No
  Sender: FDA-Public Use
  Company Number: US-PFIZER INC-2019491340

PATIENT
  Age: 79 Year
  Sex: Male
  Weight: 101.5 kg

DRUGS (6)
  1. CARTEOLOL HYDROCHLORIDE. [Suspect]
     Active Substance: CARTEOLOL HYDROCHLORIDE
     Indication: GLAUCOMA
     Dosage: 1 GTT, 2X/DAY (1 DROP TWICE DAY LEFT EYE)
     Route: 047
  2. PHOSPHOLINE IODIDE [Suspect]
     Active Substance: ECHOTHIOPHATE IODIDE
     Indication: EYE DISORDER
     Dosage: 1 GTT, 2X/DAY (1 DROP/TWICE A DAY LEFT EYE ONLY)
     Dates: start: 201705
  3. KETOROLAC TROMETHAMINE. [Suspect]
     Active Substance: KETOROLAC TROMETHAMINE
     Indication: RETINAL DISORDER
     Dosage: 1 GTT, 3X/DAY (1 DROP/ 3 X DAY)
  4. DUREZOL [Suspect]
     Active Substance: DIFLUPREDNATE
     Indication: RETINAL DISORDER
     Dosage: 1 GTT, 1X/DAY (5 ML 1 DROP/ONCE DAY)
  5. ACETAZOLAMIDE [ACETAZOLAMIDE SODIUM] [Concomitant]
     Indication: GLAUCOMA
     Dosage: 125 MG, 3X/DAY
  6. LUMIGAN [Suspect]
     Active Substance: BIMATOPROST
     Indication: GLAUCOMA
     Dosage: 1 GTT, 1X/DAY (2.5 ML 1 DROP BEDTIME)
     Route: 047

REACTIONS (1)
  - Visual impairment [Not Recovered/Not Resolved]

NARRATIVE: CASE EVENT DATE: 2017
